FAERS Safety Report 15804260 (Version 1)
Quarter: 2019Q1

REPORT INFORMATION
  Report Type: Spontaneous
  Country: GB (occurrence: GB)
  Receive Date: 20190109
  Receipt Date: 20190109
  Transmission Date: 20190417
  Serious: Yes (Disabling)
  Sender: FDA-Public Use
  Company Number: GB-009507513-1901GBR001878

PATIENT
  Age: 53 Year
  Sex: Female

DRUGS (11)
  1. QUININE SULFATE. [Concomitant]
     Active Substance: QUININE SULFATE
     Dosage: AT NIGHT
  2. ZOPICLONE [Concomitant]
     Active Substance: ZOPICLONE
     Dosage: AT NIGHT
     Route: 048
  3. ATORVASTATIN [Concomitant]
     Active Substance: ATORVASTATIN
     Dosage: AT NIGHT
  4. LANSOPRAZOLE. [Suspect]
     Active Substance: LANSOPRAZOLE
     Dosage: 30 MILLIGRAM, QD
  5. TRAMADOL HYDROCHLORIDE. [Concomitant]
     Active Substance: TRAMADOL HYDROCHLORIDE
     Dosage: A MAXIMUM OF 2 FOUR TIMES DAILY
  6. ETORICOXIB 30 MG FILM-COATED TABLETS [Suspect]
     Active Substance: ETORICOXIB
     Dosage: 60 MILLIGRAM, QD
  7. MIRTAZAPINE. [Suspect]
     Active Substance: MIRTAZAPINE
     Indication: DEPRESSION
     Dosage: AT NIGHT, DOSE REDUCED TO 30 MG ONE DAY, 15 MG NEXT
     Dates: start: 2015
  8. AMITRIPTYLINE HYDROCHLORIDE. [Suspect]
     Active Substance: AMITRIPTYLINE HYDROCHLORIDE
     Dosage: AT NIGHT
  9. CYCLIZINE [Concomitant]
     Active Substance: CYCLIZINE
     Dosage: THREE TIMES DAILY
  10. GABAPENTIN. [Concomitant]
     Active Substance: GABAPENTIN
     Dosage: 2 TABLETS MAXIMUM
  11. BACLOFEN. [Concomitant]
     Active Substance: BACLOFEN
     Dosage: AT NIGHT

REACTIONS (4)
  - Dry mouth [Unknown]
  - Somnolence [Unknown]
  - Dry eye [Unknown]
  - Dry skin [Unknown]

NARRATIVE: CASE EVENT DATE: 201805
